FAERS Safety Report 7480723-0 (Version None)
Quarter: 2011Q2

REPORT INFORMATION
  Report Type: 
  Country: None (occurrence: None)
  Receive Date: 20110516
  Receipt Date: 20110411
  Transmission Date: 20111010
  Serious: Yes (Hospitalization, Other)
  Sender: FDA-Public Use
  Company Number: US-BAYER-201037608NA

PATIENT
  Age: 21 Year
  Sex: Female
  Weight: 95.238 kg

DRUGS (6)
  1. DIGOXIN [Concomitant]
  2. YASMIN [Suspect]
     Indication: ACNE
  3. K-CON [Concomitant]
     Dosage: 20 MEQ, QD
  4. YASMIN [Suspect]
     Indication: PREMENSTRUAL SYNDROME
  5. ALTACE [Concomitant]
  6. POTASSIUM [POTASSIUM] [Concomitant]

REACTIONS (4)
  - CHOLELITHIASIS [None]
  - GALLBLADDER DISORDER [None]
  - CHOLECYSTITIS ACUTE [None]
  - INJURY [None]
